FAERS Safety Report 7887903-0 (Version None)
Quarter: 2011Q4

REPORT INFORMATION
  Report Type: 
  Country: None (occurrence: None)
  Receive Date: 20111103
  Receipt Date: 20111025
  Transmission Date: 20120403
  Serious: Yes (Life-Threatening)
  Sender: FDA-Public Use
  Company Number: JP-CELGENEUS-087-50794-11110208

PATIENT
  Sex: Male
  Weight: 52 kg

DRUGS (29)
  1. ANTIBIOTICS [Concomitant]
     Route: 048
     Dates: start: 20110101
  2. MAXIPIME [Concomitant]
     Route: 065
     Dates: start: 20110627, end: 20110711
  3. PANTOSIN [Concomitant]
     Route: 065
     Dates: start: 20110630, end: 20110630
  4. HARNAL D [Concomitant]
     Route: 065
  5. NICERGOLINE [Concomitant]
     Route: 065
  6. MAGMITT [Concomitant]
     Route: 065
     Dates: start: 20110627
  7. TANATRIL [Concomitant]
     Route: 065
  8. MEROPENEM [Concomitant]
     Route: 065
     Dates: start: 20110729
  9. ANTIBIOTICS [Concomitant]
     Indication: CELLULITIS
     Route: 041
     Dates: start: 20110101
  10. PRIMOBOLAN-DEPOT INJ [Concomitant]
     Route: 065
  11. FUROSEMIDE [Concomitant]
     Route: 065
  12. LEVOFLOXACIN [Concomitant]
     Route: 065
     Dates: start: 20110726, end: 20110728
  13. ADONA [Concomitant]
     Route: 065
     Dates: start: 20110703, end: 20110705
  14. LASIX [Concomitant]
     Route: 065
     Dates: start: 20110711, end: 20110719
  15. PRIMPERAN TAB [Concomitant]
     Route: 065
     Dates: start: 20110630, end: 20110630
  16. ARGAMATE [Concomitant]
     Route: 065
  17. GRANISETRON HCL [Concomitant]
     Route: 065
     Dates: start: 20110620, end: 20110626
  18. BUP-4 [Concomitant]
     Route: 065
  19. GASLON [Concomitant]
     Route: 065
  20. HEMOSTATIC AGENT [Concomitant]
     Indication: MELAENA
     Route: 041
     Dates: start: 20110701
  21. FOLIC ACID [Concomitant]
     Route: 065
  22. PLETAAL OD [Concomitant]
     Route: 065
  23. VIDAZA [Suspect]
     Dosage: 37.5 MILLIGRAM
     Route: 041
     Dates: start: 20110620, end: 20110626
  24. PLATELETS [Concomitant]
     Indication: MELAENA
     Route: 041
     Dates: start: 20110701
  25. CILOSTAZOL [Concomitant]
     Route: 065
  26. ROHYPNOL [Concomitant]
     Route: 065
     Dates: start: 20110713, end: 20110809
  27. MECOBALAMIN [Concomitant]
     Route: 065
  28. SENNOSIDE [Concomitant]
     Route: 065
     Dates: start: 20110627
  29. FENTANYL [Concomitant]
     Route: 065
     Dates: start: 20110807

REACTIONS (1)
  - PNEUMONIA [None]
